FAERS Safety Report 22077122 (Version 1)
Quarter: 2023Q1

REPORT INFORMATION
  Report Type: Spontaneous
  Country: PT (occurrence: PT)
  Receive Date: 20230309
  Receipt Date: 20230309
  Transmission Date: 20230417
  Serious: Yes (Other)
  Sender: FDA-Public Use
  Company Number: PT-VIIV HEALTHCARE LIMITED-PT2023EME028018

PATIENT
  Sex: Male

DRUGS (15)
  1. ZIDOVUDINE [Suspect]
     Active Substance: ZIDOVUDINE
     Indication: HIV infection
     Dosage: UNK
     Route: 065
     Dates: start: 1995
  2. ZIDOVUDINE [Suspect]
     Active Substance: ZIDOVUDINE
     Dosage: UNK
     Dates: start: 1996
  3. ZIDOVUDINE [Suspect]
     Active Substance: ZIDOVUDINE
     Dosage: UNK
     Dates: start: 1996
  4. TENOFOVIR [Suspect]
     Active Substance: TENOFOVIR
     Indication: HIV infection
     Dosage: UNK
     Route: 065
  5. RITONAVIR [Suspect]
     Active Substance: RITONAVIR
     Indication: HIV infection
     Dosage: UNK
  6. ABACAVIR [Suspect]
     Active Substance: ABACAVIR
     Indication: HIV infection
     Dosage: UNK
     Route: 065
  7. NELFINAVIR [Suspect]
     Active Substance: NELFINAVIR
     Indication: HIV infection
     Dosage: UNK
     Route: 065
  8. INDINAVIR [Suspect]
     Active Substance: INDINAVIR
     Indication: HIV infection
     Dosage: UNK
     Route: 065
     Dates: start: 1997
  9. STAVUDINE [Suspect]
     Active Substance: STAVUDINE
     Indication: HIV infection
     Dosage: UNK
     Route: 065
     Dates: start: 1997
  10. ZALCITABINE [Suspect]
     Active Substance: ZALCITABINE
     Indication: HIV infection
     Dosage: UNK
     Dates: start: 1996
  11. SAQUINAVIR [Suspect]
     Active Substance: SAQUINAVIR
     Indication: HIV infection
     Dosage: UNK
     Route: 065
     Dates: start: 1996
  12. DIDANOSINE [Suspect]
     Active Substance: DIDANOSINE
     Indication: HIV infection
     Dosage: UNK
     Route: 065
     Dates: start: 1995
  13. LAMIVUDINE [Suspect]
     Active Substance: LAMIVUDINE
     Indication: HIV infection
     Dosage: UNK
     Route: 065
     Dates: start: 1997
  14. LAMIVUDINE [Suspect]
     Active Substance: LAMIVUDINE
     Dosage: UNK
     Dates: start: 1996
  15. AMPRENAVIR [Suspect]
     Active Substance: AMPRENAVIR
     Indication: HIV infection
     Dosage: UNK
     Route: 065

REACTIONS (3)
  - Pathogen resistance [Unknown]
  - Viral mutation identified [Unknown]
  - Virologic failure [Recovered/Resolved]
